FAERS Safety Report 6617090-8 (Version None)
Quarter: 2010Q1

REPORT INFORMATION
  Report Type: 
  Country: None (occurrence: None)
  Receive Date: 20100307
  Receipt Date: 20100303
  Transmission Date: 20100710
  Serious: Yes (Other)
  Sender: FDA-Public Use
  Company Number: IT-BRISTOL-MYERS SQUIBB COMPANY-15001464

PATIENT
  Age: 79 Year
  Sex: Male

DRUGS (5)
  1. COUMADIN [Suspect]
     Indication: ATRIAL FIBRILLATION
     Dosage: INTERRUPTED ON 17FEB10
     Route: 048
     Dates: start: 20100209
  2. MYCOSTATIN [Suspect]
     Indication: CANDIDIASIS
     Dosage: SUSPENDED FROM 14-16FEB10 100000 IU/ML 14-17FEB10
     Route: 048
     Dates: start: 20100214
  3. LASIX [Concomitant]
     Dosage: TABS
  4. CONGESCOR [Concomitant]
     Dosage: TABS
  5. LANOXIN [Concomitant]
     Dosage: TABS

REACTIONS (2)
  - HAEMATURIA [None]
  - INTERNATIONAL NORMALISED RATIO INCREASED [None]
